FAERS Safety Report 9300511 (Version 1)
Quarter: 2013Q2

REPORT INFORMATION
  Report Type: Spontaneous
  Country: US (occurrence: US)
  Receive Date: 20130521
  Receipt Date: 20130521
  Transmission Date: 20140414
  Serious: Yes (Hospitalization)
  Sender: FDA-Public Use
  Company Number: US-BRISTOL-MYERS SQUIBB COMPANY-18884445

PATIENT
  Sex: 0

DRUGS (2)
  1. ABILIFY [Suspect]
     Indication: AFFECTIVE DISORDER
  2. EFFEXOR [Suspect]
     Indication: AFFECTIVE DISORDER

REACTIONS (1)
  - Cardiac failure congestive [Unknown]
